FAERS Safety Report 14961324 (Version 1)
Quarter: 2018Q2

REPORT INFORMATION
  Report Type: Spontaneous
  Country: US (occurrence: US)
  Receive Date: 20180601
  Receipt Date: 20180601
  Transmission Date: 20180711
  Serious: Yes (Hospitalization, Other)
  Sender: FDA-Public Use
  Company Number: US-BEH-2018091222

PATIENT
  Sex: Male
  Weight: 76.64 kg

DRUGS (20)
  1. LMX                                /00033401/ [Concomitant]
  2. SODIUM CHLORIDE. [Concomitant]
     Active Substance: SODIUM CHLORIDE
  3. IPRATROPIUM [Concomitant]
     Active Substance: IPRATROPIUM
  4. HIZENTRA [Suspect]
     Active Substance: HUMAN IMMUNOGLOBULIN G
     Indication: IMMUNODEFICIENCY COMMON VARIABLE
     Dosage: UNK
     Route: 058
  5. DEXILANT [Concomitant]
     Active Substance: DEXLANSOPRAZOLE
  6. METOPROLOL. [Concomitant]
     Active Substance: METOPROLOL
  7. HIZENTRA [Suspect]
     Active Substance: HUMAN IMMUNOGLOBULIN G
     Dosage: UNK
     Route: 058
  8. HIZENTRA [Suspect]
     Active Substance: HUMAN IMMUNOGLOBULIN G
     Dosage: UNK
     Route: 058
  9. LIDOCAINE AND PRILOCAINE [Concomitant]
     Active Substance: LIDOCAINE\PRILOCAINE
  10. ATIVAN [Concomitant]
     Active Substance: LORAZEPAM
  11. LORAZEPAM. [Concomitant]
     Active Substance: LORAZEPAM
  12. HIZENTRA [Suspect]
     Active Substance: HUMAN IMMUNOGLOBULIN G
     Dosage: 11 G, QW
     Route: 058
     Dates: start: 20130717
  13. XARELTO [Concomitant]
     Active Substance: RIVAROXABAN
  14. CLARITIN [Concomitant]
     Active Substance: LORATADINE
  15. BROVANA [Concomitant]
     Active Substance: ARFORMOTEROL TARTRATE
  16. SIMVASTATIN. [Concomitant]
     Active Substance: SIMVASTATIN
  17. MULTIVITAMIN                       /00097801/ [Concomitant]
     Active Substance: VITAMINS
  18. DIPHENHYDRAMINE. [Concomitant]
     Active Substance: DIPHENHYDRAMINE
  19. EPINEPHRINE. [Concomitant]
     Active Substance: EPINEPHRINE
  20. RANITIDINE. [Concomitant]
     Active Substance: RANITIDINE

REACTIONS (4)
  - Loss of consciousness [Unknown]
  - Hypotension [Unknown]
  - Parkinson^s disease [Unknown]
  - Tremor [Unknown]
